FAERS Safety Report 17073343 (Version 1)
Quarter: 2019Q4

REPORT INFORMATION
  Report Type: Spontaneous
  Country: US (occurrence: US)
  Receive Date: 20191126
  Receipt Date: 20191126
  Transmission Date: 20200122
  Serious: No
  Sender: FDA-Public Use
  Company Number: US-LUPIN PHARMACEUTICALS INC.-2019-00264

PATIENT
  Age: 1 Year
  Sex: Male

DRUGS (1)
  1. GAVILAX [Suspect]
     Active Substance: POLYETHYLENE GLYCOL 3350
     Indication: CONSTIPATION
     Dosage: UNK UNK, QD,  (1/2 CAPFUL ONCE DAILY IN 6 OZ GLASS OF WATER)
     Route: 048
     Dates: start: 20190114

REACTIONS (1)
  - Psychomotor hyperactivity [Recovered/Resolved]

NARRATIVE: CASE EVENT DATE: 20190114
